FAERS Safety Report 10169697 (Version 1)
Quarter: 2014Q2

REPORT INFORMATION
  Report Type: Spontaneous
  Country: US (occurrence: US)
  Receive Date: 20140513
  Receipt Date: 20140513
  Transmission Date: 20141212
  Serious: Yes (Other)
  Sender: FDA-Public Use
  Company Number: US-PFIZER INC-2014125178

PATIENT
  Age: 10 Year
  Sex: Male
  Weight: 39 kg

DRUGS (3)
  1. AZITHROMYCIN [Suspect]
     Indication: STREPTOCOCCAL INFECTION
     Dosage: 250 MG, 3X/DAY
     Dates: start: 201311
  2. AZITHROMYCIN [Suspect]
     Dosage: 250 MG, DAILY
  3. AZITHROMYCIN [Suspect]
     Dosage: UNK

REACTIONS (4)
  - Bartonellosis [Unknown]
  - Epistaxis [Unknown]
  - Psychotic disorder [Unknown]
  - Ill-defined disorder [Unknown]
